FAERS Safety Report 24151324 (Version 2)
Quarter: 2024Q3

REPORT INFORMATION
  Report Type: Spontaneous
  Country: US (occurrence: US)
  Receive Date: 20240730
  Receipt Date: 20240801
  Transmission Date: 20241016
  Serious: No
  Sender: GLENMARK
  Company Number: US-GLENMARK PHARMACEUTICALS-2024GMK089825

PATIENT

DRUGS (2)
  1. MUPIROCIN [Suspect]
     Active Substance: MUPIROCIN
     Indication: Wound
     Dosage: UNK, BID (APPLY TO EACH NOSTRIL TWO TIMES A DAY)
     Route: 045
  2. MUPIROCIN [Suspect]
     Active Substance: MUPIROCIN
     Indication: Cellulitis

REACTIONS (1)
  - Product prescribing issue [Unknown]
